FAERS Safety Report 7514282-0 (Version None)
Quarter: 2011Q2

REPORT INFORMATION
  Report Type: 
  Country: None (occurrence: None)
  Receive Date: 20110601
  Receipt Date: 20110523
  Transmission Date: 20111010
  Serious: Yes (Hospitalization)
  Sender: FDA-Public Use
  Company Number: US-BIOGENIDEC-2011BI010842

PATIENT
  Age: 50 Year
  Sex: Female

DRUGS (2)
  1. AVONEX [Suspect]
     Indication: MULTIPLE SCLEROSIS
     Route: 030
  2. AVONEX [Suspect]
     Route: 030
     Dates: start: 20101130

REACTIONS (7)
  - ROAD TRAFFIC ACCIDENT [None]
  - DIZZINESS [None]
  - PELVIC FRACTURE [None]
  - CONTUSION [None]
  - THERMAL BURN [None]
  - GAIT DISTURBANCE [None]
  - HAEMORRHAGE [None]
